FAERS Safety Report 17156488 (Version 2)
Quarter: 2020Q1

REPORT INFORMATION
  Report Type: Spontaneous
  Country: US (occurrence: US)
  Receive Date: 20191216
  Receipt Date: 20200103
  Transmission Date: 20200409
  Serious: Yes (Other)
  Sender: FDA-Public Use
  Company Number: US-HORIZON-RAV-0410-2019

PATIENT
  Age: 24 Year
  Sex: Female

DRUGS (6)
  1. RAVICTI [Suspect]
     Active Substance: GLYCEROL PHENYLBUTYRATE
     Indication: ORNITHINE TRANSCARBAMOYLASE DEFICIENCY
     Dates: start: 2016, end: 20191204
  2. VITAMIN D [Concomitant]
     Active Substance: VITAMIN D NOS
  3. CITRULLINE [Concomitant]
     Active Substance: CITRULLINE
  4. TEMAZEPAM. [Concomitant]
     Active Substance: TEMAZEPAM
  5. XANAX [Concomitant]
     Active Substance: ALPRAZOLAM
  6. ZIPRASIDONE. [Concomitant]
     Active Substance: ZIPRASIDONE

REACTIONS (3)
  - Liver transplant [Recovered/Resolved]
  - Hyperammonaemia [Unknown]
  - Complications of transplant surgery [Recovering/Resolving]

NARRATIVE: CASE EVENT DATE: 2019
